FAERS Safety Report 8368261-4 (Version None)
Quarter: 2012Q2

REPORT INFORMATION
  Report Type: 
  Country: None (occurrence: None)
  Receive Date: 20120517
  Receipt Date: 20120511
  Transmission Date: 20120825
  Serious: Yes (Hospitalization, Other)
  Sender: FDA-Public Use
  Company Number: US-AMGEN-USASP2012030145

PATIENT
  Age: 68 Year
  Sex: Male
  Weight: 138.78 kg

DRUGS (2)
  1. ARANESP [Suspect]
     Dosage: 300 MUG, Q2WK
  2. ARANESP [Suspect]
     Indication: ANAEMIA
     Dosage: UNK
     Dates: start: 20100201

REACTIONS (3)
  - CARDIAC FAILURE CONGESTIVE [None]
  - THERAPEUTIC RESPONSE DECREASED [None]
  - ANAEMIA [None]
